FAERS Safety Report 7878825-X (Version None)
Quarter: 2011Q4

REPORT INFORMATION
  Report Type: 
  Country: None (occurrence: None)
  Receive Date: 20111021
  Receipt Date: 20110915
  Transmission Date: 20120403
  Serious: No
  Sender: FDA-Public Use
  Company Number: US-006303

PATIENT
  Sex: Male
  Weight: 98.4306 kg

DRUGS (8)
  1. TERAZOSIN HCL [Concomitant]
  2. OLMESARTAN MEDOXOMIL [Concomitant]
  3. CASODEX [Concomitant]
  4. OXYBUTYNIN [Concomitant]
  5. ZETIA [Concomitant]
  6. METOPROLOL TARTRATE [Concomitant]
  7. PRADAXA [Concomitant]
  8. DEGARELIX 240 MG [Suspect]
     Indication: PROSTATE CANCER
     Dosage: (240 MG 1X SUBCUTANEOUS)
     Route: 058
     Dates: start: 20110915, end: 20110915

REACTIONS (3)
  - RETCHING [None]
  - INJECTION SITE SWELLING [None]
  - INJECTION SITE PAIN [None]
